FAERS Safety Report 25869125 (Version 1)
Quarter: 2025Q4

REPORT INFORMATION
  Report Type: Spontaneous
  Country: None (occurrence: None)
  Receive Date: 20251001
  Receipt Date: 20251001
  Transmission Date: 20260117
  Serious: Yes (Disabling, Other)
  Sender: ORGANON
  Company Number: None

PATIENT
  Age: 69 Year
  Sex: Male

DRUGS (10)
  1. FINASTERIDE [Suspect]
     Active Substance: FINASTERIDE
     Dosage: UNK
  2. FINASTERIDE [Suspect]
     Active Substance: FINASTERIDE
     Indication: Adverse drug reaction
     Dosage: 5MG (GENERICS UK)
  3. GENERICS UK ATORVASTATIN [Concomitant]
     Indication: Blood cholesterol increased
     Dosage: UNK (GENERICS UK)
  4. GENERICS UK BISOPROLOL [Concomitant]
     Indication: Heart valve replacement
     Dosage: UNK
  5. TAMSULOSIN [Concomitant]
     Active Substance: TAMSULOSIN
     Indication: Benign prostatic hyperplasia
     Dosage: UNK
  6. LANSOPRAZOLE [Concomitant]
     Active Substance: LANSOPRAZOLE
     Indication: Adverse drug reaction
     Dosage: UNK
  7. LOSARTAN [Concomitant]
     Active Substance: LOSARTAN
     Indication: Heart valve replacement
     Dosage: UNK
  8. ASPIRIN [Concomitant]
     Active Substance: ASPIRIN
     Indication: Heart valve replacement
     Dosage: UNK
  9. CHOLECALCIFEROL [Concomitant]
     Active Substance: CHOLECALCIFEROL
     Indication: Adverse drug reaction
     Dosage: UNK
  10. POTASSIUM BICARBONATE\SODIUM ALGINATE [Concomitant]
     Active Substance: POTASSIUM BICARBONATE\SODIUM ALGINATE
     Indication: Adverse drug reaction
     Dosage: UNK

REACTIONS (2)
  - Depression [Not Recovered/Not Resolved]
  - Anxiety [Not Recovered/Not Resolved]
